FAERS Safety Report 8183178-6 (Version None)
Quarter: 2012Q1

REPORT INFORMATION
  Report Type: 
  Country: None (occurrence: None)
  Receive Date: 20120127
  Receipt Date: 20111212
  Transmission Date: 20120608
  Serious: Yes (Other)
  Sender: FDA-Public Use
  Company Number: AMAG201100253

PATIENT
  Age: 59 Year
  Sex: Male
  Weight: 92.1 kg

DRUGS (25)
  1. BUDESONIDE [Concomitant]
  2. CRESTOR [Concomitant]
  3. ACETAMINOPHEN [Concomitant]
  4. FUROSEMIDE [Concomitant]
  5. AMITIZA [Concomitant]
  6. ISOSORBIDE (ISOSORBIDE) [Concomitant]
  7. NOVOLOG [Concomitant]
  8. AMLODIPINE (AMLODIPINE MALEATE) [Concomitant]
  9. ASPIRIN [Concomitant]
  10. FERROUS SULFATE (FWERROUS SULFATE) [Concomitant]
  11. MULTIVITAMIN [Concomitant]
  12. NITROGLYCERIN [Concomitant]
  13. OMEPRAZOLE [Concomitant]
  14. AVAPETON [Concomitant]
  15. ATENOLOL [Concomitant]
  16. LANTUS [Concomitant]
  17. PLAVIX [Concomitant]
  18. SPIRIVA [Concomitant]
  19. CLONIDINE [Concomitant]
  20. THIAMINE (THIAMINE HYDROCHLORIDE) [Concomitant]
  21. OXYGEN [Concomitant]
  22. ASCORBIC ACID [Concomitant]
  23. LOVAZA [Concomitant]
  24. XOPENEX [Concomitant]
  25. FERAHEME [Suspect]
     Indication: IRON DEFICIENCY ANAEMIA
     Dosage: 510 MG, SINGLE, INTRAVENOUS
     Route: 042
     Dates: start: 20111205, end: 20111205

REACTIONS (5)
  - OXYGEN SATURATION DECREASED [None]
  - HYPERHIDROSIS [None]
  - HYPERTENSION [None]
  - CHEST PAIN [None]
  - DYSPNOEA [None]
